FAERS Safety Report 25422953 (Version 1)
Quarter: 2025Q2

REPORT INFORMATION
  Report Type: Report from Study
  Country: PK (occurrence: PK)
  Receive Date: 20250611
  Receipt Date: 20250611
  Transmission Date: 20250716
  Serious: Yes (Other)
  Sender: ROCHE
  Company Number: PK-ROCHE-10000309096

PATIENT
  Age: 57 Year
  Sex: Female

DRUGS (1)
  1. HERCEPTIN [Suspect]
     Active Substance: TRASTUZUMAB
     Indication: Breast cancer metastatic
     Dosage: 18 CYCLES
     Route: 058
     Dates: start: 20231024

REACTIONS (1)
  - Metastasis [Unknown]

NARRATIVE: CASE EVENT DATE: 20250519
